FAERS Safety Report 9797893 (Version 1)
Quarter: 2014Q1

REPORT INFORMATION
  Report Type: Spontaneous
  Country: US (occurrence: US)
  Receive Date: 20140106
  Receipt Date: 20140106
  Transmission Date: 20141002
  Serious: No
  Sender: FDA-Public Use
  Company Number: US-009507513-1401USA000888

PATIENT
  Age: 25 Year
  Sex: Female

DRUGS (2)
  1. CLARITIN-D-12 [Suspect]
     Indication: THROAT IRRITATION
     Dosage: 5 MG, QD
     Route: 048
     Dates: start: 201312
  2. CLARITIN-D-12 [Suspect]
     Indication: NASAL CONGESTION

REACTIONS (4)
  - Dry mouth [Unknown]
  - Underdose [Unknown]
  - Inappropriate schedule of drug administration [Unknown]
  - Drug effect decreased [Unknown]
